FAERS Safety Report 8462524 (Version 7)
Quarter: 2012Q4

REPORT INFORMATION
  Report Type: Report from Study
  Country: JP (occurrence: JP)
  Receive Date: 20120316
  Receipt Date: 20121123
  Transmission Date: 20130627
  Serious: Yes (Life-Threatening, Other)
  Sender: FDA-Public Use
  Company Number: JP-JNJFOC-20120305838

PATIENT
  Age: 71 Year
  Sex: Male

DRUGS (8)
  1. STELARA [Suspect]
     Indication: PSORIASIS
     Route: 058
     Dates: start: 20120215
  2. STELARA [Suspect]
     Indication: PSORIASIS
     Route: 058
     Dates: start: 20110727
  3. STELARA [Suspect]
     Indication: PSORIASIS
     Route: 058
     Dates: start: 20111116
  4. STELARA [Suspect]
     Indication: PSORIASIS
     Route: 058
     Dates: start: 20110824
  5. ALESION [Concomitant]
     Indication: PSORIASIS
     Route: 048
     Dates: start: 20061214
  6. BLOPRESS [Concomitant]
     Indication: HYPERTENSION
     Route: 048
  7. NORVASC [Concomitant]
     Indication: HYPERTENSION
     Route: 048
  8. METHADERM [Concomitant]
     Indication: PSORIASIS
     Route: 061
     Dates: start: 20120418

REACTIONS (2)
  - Pleural mesothelioma malignant [Unknown]
  - Hepatic function abnormal [Recovered/Resolved]
